FAERS Safety Report 15155793 (Version 1)
Quarter: 2018Q3

REPORT INFORMATION
  Report Type: Spontaneous
  Country: SE (occurrence: SE)
  Receive Date: 20180717
  Receipt Date: 20180717
  Transmission Date: 20181010
  Serious: Yes (Hospitalization)
  Sender: FDA-Public Use
  Company Number: SE-US WORLDMEDS, LLC-STA_00017843

PATIENT
  Age: 53 Year
  Sex: Male

DRUGS (5)
  1. AMANTADINE. [Concomitant]
     Active Substance: AMANTADINE HYDROCHLORIDE
     Indication: PARKINSON^S DISEASE
  2. APOMORPHINE HYDROCHLORIDE [Suspect]
     Active Substance: APOMORPHINE HYDROCHLORIDE
     Indication: PARKINSON^S DISEASE
     Dosage: (5MG/ML) AT 1.1 ML/HOUR (EXTRA DOSE = 0.37 ML/HOUR/INFUSION
     Dates: start: 20150203, end: 20150210
  3. STALEVO [Concomitant]
     Active Substance: CARBIDOPA\ENTACAPONE\LEVODOPA
     Indication: PARKINSON^S DISEASE
     Dosage: 5X75MG + 1X100MG/DAY
  4. PARGITAN [Concomitant]
     Active Substance: TRIHEXYPHENIDYL HYDROCHLORIDE
     Indication: PARKINSON^S DISEASE
     Route: 048
     Dates: start: 20150212
  5. SIFROL [Concomitant]
     Active Substance: PRAMIPEXOLE
     Indication: PARKINSON^S DISEASE
     Route: 048
     Dates: start: 20150212

REACTIONS (1)
  - Hypermobility syndrome [Recovered/Resolved]

NARRATIVE: CASE EVENT DATE: 20150210
